FAERS Safety Report 13652801 (Version 1)
Quarter: 2017Q2

REPORT INFORMATION
  Report Type: Spontaneous
  Country: FR (occurrence: FR)
  Receive Date: 20170614
  Receipt Date: 20170614
  Transmission Date: 20170830
  Serious: Yes (Other)
  Sender: FDA-Public Use
  Company Number: FR-BAYER-2017-110198

PATIENT
  Age: 34 Year
  Sex: Female

DRUGS (2)
  1. MIRENA [Suspect]
     Active Substance: LEVONORGESTREL
     Indication: CONTRACEPTION
     Dosage: 20 MCG/24HR, CONT
     Route: 015
     Dates: start: 201601
  2. MIRENA [Suspect]
     Active Substance: LEVONORGESTREL
     Indication: CONTRACEPTION
     Dosage: 20 MCG/24HR, CONT
     Route: 015
     Dates: start: 20120913, end: 20141021

REACTIONS (8)
  - Asthenia [Not Recovered/Not Resolved]
  - Pruritus [Not Recovered/Not Resolved]
  - Loss of libido [Not Recovered/Not Resolved]
  - Abnormal weight gain [Not Recovered/Not Resolved]
  - Suicidal ideation [Not Recovered/Not Resolved]
  - Anxiety [Not Recovered/Not Resolved]
  - Libido decreased [Not Recovered/Not Resolved]
  - Hair growth abnormal [Not Recovered/Not Resolved]

NARRATIVE: CASE EVENT DATE: 201301
